FAERS Safety Report 7354875-7 (Version None)
Quarter: 2011Q1

REPORT INFORMATION
  Report Type: 
  Country: None (occurrence: None)
  Receive Date: 20110316
  Receipt Date: 20110311
  Transmission Date: 20110831
  Serious: No
  Sender: FDA-Public Use
  Company Number: US-TEVA-271077USA

PATIENT
  Sex: Female
  Weight: 74.91 kg

DRUGS (3)
  1. KLONOPIN [Concomitant]
     Indication: ANXIETY
     Route: 048
  2. PLAN B ONE-STEP [Suspect]
     Indication: POST COITAL CONTRACEPTION
     Route: 048
     Dates: start: 20110306, end: 20110306
  3. CYMBALTA [Concomitant]
     Indication: DEPRESSION
     Route: 048

REACTIONS (1)
  - MENSTRUATION IRREGULAR [None]
